FAERS Safety Report 9190178 (Version 1)
Quarter: 2013Q1

REPORT INFORMATION
  Report Type: Spontaneous
  Country: US (occurrence: None)
  Receive Date: 20120703
  Receipt Date: 20120703
  Transmission Date: 20140127
  Serious: No
  Sender: FDA-Public Use
  Company Number: PHEH2012US007710

PATIENT
  Sex: Male
  Weight: 83.9 kg

DRUGS (1)
  1. GILENYA (FTY)CAPSULE [Suspect]
     Route: 048
     Dates: start: 20110308

REACTIONS (1)
  - Aphonia [None]
